FAERS Safety Report 6863627-3 (Version None)
Quarter: 2010Q3

REPORT INFORMATION
  Report Type: 
  Country: None (occurrence: None)
  Receive Date: 20100721
  Receipt Date: 20080303
  Transmission Date: 20110219
  Serious: No
  Sender: FDA-Public Use
  Company Number: US-PFIZER INC-2008021987

PATIENT
  Sex: Female
  Weight: 59.1 kg

DRUGS (6)
  1. CHANTIX [Suspect]
     Indication: SMOKING CESSATION THERAPY
     Dosage: BID DAILY
     Route: 048
     Dates: start: 20080101
  2. FOSAMAX [Concomitant]
  3. AMLODIPINE [Concomitant]
     Indication: HYPERTENSION
  4. CALCIUM [Concomitant]
  5. ADVAIR DISKUS 100/50 [Concomitant]
  6. ALBUTEROL [Concomitant]

REACTIONS (1)
  - NAUSEA [None]
